FAERS Safety Report 25539418 (Version 3)
Quarter: 2025Q3

REPORT INFORMATION
  Report Type: Report from Study
  Country: US (occurrence: US)
  Receive Date: 20250710
  Receipt Date: 20250925
  Transmission Date: 20251021
  Serious: No
  Sender: SUNOVION
  Company Number: US-SUMITOMO PHARMA SWITZERLAND GMBH-2025SPA007719

PATIENT
  Age: 61 Year
  Sex: Male

DRUGS (10)
  1. ORGOVYX [Suspect]
     Active Substance: RELUGOLIX
     Indication: Prostate cancer
     Route: 048
  2. ORGOVYX [Suspect]
     Active Substance: RELUGOLIX
     Route: 048
  3. Cbd kings [Concomitant]
  4. HYDROCODONE BITARTRATE AND ACETAMINOPHEN [Concomitant]
     Active Substance: ACETAMINOPHEN\HYDROCODONE BITARTRATE
  5. JARDIANCE [Concomitant]
     Active Substance: EMPAGLIFLOZIN
  6. TADALAFIL [Concomitant]
     Active Substance: TADALAFIL
  7. MEGESTROL ACETATE [Concomitant]
     Active Substance: MEGESTROL ACETATE
  8. METFORMIN HYDROCHLORIDE [Concomitant]
     Active Substance: METFORMIN HYDROCHLORIDE
  9. SILDENAFIL CITRATE [Concomitant]
     Active Substance: SILDENAFIL CITRATE
  10. TRULICITY [Concomitant]
     Active Substance: DULAGLUTIDE

REACTIONS (2)
  - Dizziness [Unknown]
  - Hot flush [Unknown]
